FAERS Safety Report 5402242-5 (Version None)
Quarter: 2007Q3

REPORT INFORMATION
  Report Type: 
  Country: None (occurrence: None)
  Receive Date: 20070801
  Receipt Date: 20070723
  Transmission Date: 20080115
  Serious: Yes (Hospitalization)
  Sender: FDA-Public Use
  Company Number: FR-BAXTER-2007BH005472

PATIENT
  Age: 12 Year
  Sex: Male

DRUGS (4)
  1. ADVATE [Suspect]
     Indication: FACTOR VIII DEFICIENCY
     Route: 042
     Dates: start: 20070527, end: 20070527
  2. ADVATE [Suspect]
     Indication: HAEMARTHROSIS
     Route: 042
     Dates: start: 20070527, end: 20070527
  3. ADVATE [Suspect]
     Route: 042
     Dates: start: 20070528, end: 20070528
  4. ADVATE [Suspect]
     Route: 042
     Dates: start: 20070528, end: 20070528

REACTIONS (1)
  - THROAT IRRITATION [None]
